FAERS Safety Report 16791093 (Version 1)
Quarter: 2019Q3

REPORT INFORMATION
  Report Type: Spontaneous
  Country: US (occurrence: US)
  Receive Date: 20190813
  Receipt Date: 20190813
  Transmission Date: 20191005
  Serious: No
  Sender: FDA-Public Use
  Company Number: None

PATIENT

DRUGS (1)
  1. EPINEPHRINE. [Suspect]
     Active Substance: EPINEPHRINE

REACTIONS (7)
  - Pain [None]
  - Wrong dose [None]
  - Product design issue [None]
  - Screaming [None]
  - Headache [None]
  - Hypertension [None]
  - Device programming error [None]
